FAERS Safety Report 5006564-1 (Version None)
Quarter: 2006Q2

REPORT INFORMATION
  Report Type: 
  Country: None (occurrence: None)
  Receive Date: 20060519
  Receipt Date: 20050202
  Transmission Date: 20061013
  Serious: Yes (Hospitalization)
  Sender: FDA-Public Use
  Company Number: 2005AP00744

PATIENT
  Age: 76 Year
  Sex: Male

DRUGS (10)
  1. OMEPRAL [Suspect]
     Indication: GASTRIC ULCER
     Route: 048
  2. OMEPRAL [Interacting]
     Route: 048
  3. SIMVASTATIN [Interacting]
     Indication: HYPERLIPIDAEMIA
     Route: 048
  4. WARFARIN SODIUM [Interacting]
     Indication: MYOCARDIAL INFARCTION
     Route: 048
  5. MOSAPRIDE CITRATE [Interacting]
     Indication: GASTRIC ULCER
     Route: 048
  6. ASPIRIN [Concomitant]
     Indication: MYOCARDIAL INFARCTION
     Route: 048
  7. ECABET SODIUM [Concomitant]
     Indication: ULCER
  8. DIPYRIDAMOLE [Concomitant]
     Indication: MYOCARDIAL INFARCTION
     Route: 048
  9. ISOSORBIDE DINITRATE [Concomitant]
     Indication: MYOCARDIAL INFARCTION
     Route: 048
  10. ENALAPRIL MALEATE [Concomitant]
     Indication: MYOCARDIAL INFARCTION
     Route: 048

REACTIONS (10)
  - ABASIA [None]
  - ANGIOMYOLIPOMA [None]
  - ANOREXIA [None]
  - ASTHENIA [None]
  - DRUG INTERACTION [None]
  - GASTRIC DISORDER [None]
  - HEPATIC STEATOSIS [None]
  - MYOPATHY [None]
  - RENAL CYST [None]
  - RENAL DISORDER [None]
